FAERS Safety Report 7511622-3 (Version None)
Quarter: 2011Q2

REPORT INFORMATION
  Report Type: 
  Country: None (occurrence: None)
  Receive Date: 20110531
  Receipt Date: 20110520
  Transmission Date: 20111010
  Serious: Yes (Hospitalization)
  Sender: FDA-Public Use
  Company Number: FR-PFIZER INC-2011097806

PATIENT
  Age: 5 Year
  Sex: Male

DRUGS (5)
  1. UN-ALFA [Suspect]
     Dosage: UNK
     Route: 048
  2. CALCIUM CARBONATE [Suspect]
     Route: 048
  3. SODIUM BICARBONATE [Concomitant]
  4. SOMATROPIN RDNA [Suspect]
     Indication: GROWTH RETARDATION
     Dosage: UNK
     Route: 058
     Dates: start: 20100831, end: 20110214
  5. FERROSTRANE [Suspect]
     Route: 048

REACTIONS (1)
  - NEPHROTIC SYNDROME [None]
